FAERS Safety Report 7878676-6 (Version None)
Quarter: 2011Q4

REPORT INFORMATION
  Report Type: 
  Country: None (occurrence: None)
  Receive Date: 20111101
  Receipt Date: 20111021
  Transmission Date: 20120403
  Serious: Yes (Other)
  Sender: FDA-Public Use
  Company Number: US-BAYER-2011-062445

PATIENT
  Age: 19 Year
  Sex: Female
  Weight: 63.492 kg

DRUGS (5)
  1. YAZ [Suspect]
     Indication: ACNE
     Dosage: UNK
     Dates: start: 20080501, end: 20080901
  2. IBUPROFEN (ADVIL) [Concomitant]
  3. CEPHALEXIN [Concomitant]
  4. ZOVIRAX [Concomitant]
  5. MULTI-VITAMIN [Concomitant]
     Indication: SUPPLEMENTATION THERAPY
     Dosage: UNK
     Dates: start: 20070101

REACTIONS (14)
  - VISUAL ACUITY REDUCED [None]
  - ANXIETY [None]
  - DEFORMITY [None]
  - OCULAR VASCULAR DISORDER [None]
  - VISION BLURRED [None]
  - OPTIC ISCHAEMIC NEUROPATHY [None]
  - HEADACHE [None]
  - RETINAL ARTERY OCCLUSION [None]
  - VISUAL IMPAIRMENT [None]
  - PAIN [None]
  - BLINDNESS [None]
  - CEREBROVASCULAR ACCIDENT [None]
  - INJURY [None]
  - ANHEDONIA [None]
